FAERS Safety Report 25052766 (Version 2)
Quarter: 2025Q1

REPORT INFORMATION
  Report Type: Spontaneous
  Country: US (occurrence: US)
  Receive Date: 20250307
  Receipt Date: 20250307
  Transmission Date: 20250409
  Serious: No
  Sender: SANOFI AVENTIS
  Company Number: US-SA-2025SA056869

PATIENT
  Age: 72 Year
  Sex: Female

DRUGS (2)
  1. KEVZARA [Suspect]
     Active Substance: SARILUMAB
     Indication: Polymyalgia rheumatica
     Dosage: 200 MG, Q4W
     Route: 058
  2. KEVZARA [Suspect]
     Active Substance: SARILUMAB
     Indication: Giant cell arteritis

REACTIONS (4)
  - Dizziness [Recovered/Resolved]
  - Fatigue [Unknown]
  - Off label use [Unknown]
  - Product use in unapproved indication [Unknown]
